FAERS Safety Report 19694635 (Version 3)
Quarter: 2021Q4

REPORT INFORMATION
  Report Type: Spontaneous
  Country: JP (occurrence: JP)
  Receive Date: 20210812
  Receipt Date: 20211221
  Transmission Date: 20220303
  Serious: Yes (Death, Life-Threatening, Other)
  Sender: FDA-Public Use
  Company Number: JP-JAZZ-2021-JP-014400

PATIENT
  Age: 61 Year
  Sex: Male
  Weight: 59.6 kg

DRUGS (1)
  1. DEFITELIO [Suspect]
     Active Substance: DEFIBROTIDE SODIUM
     Indication: Venoocclusive liver disease
     Dosage: 25 MILLIGRAM/KILOGRAM, QD
     Route: 042
     Dates: start: 20210724, end: 20210726

REACTIONS (6)
  - Mouth haemorrhage [Fatal]
  - Venoocclusive liver disease [Fatal]
  - Disease progression [Fatal]
  - Stenotrophomonas infection [Fatal]
  - Hypotension [Not Recovered/Not Resolved]
  - Multiple organ dysfunction syndrome [Unknown]

NARRATIVE: CASE EVENT DATE: 20210701
